FAERS Safety Report 9206480 (Version 2)
Quarter: 2014Q1

REPORT INFORMATION
  Report Type: Report from Study
  Country: KR (occurrence: KR)
  Receive Date: 20130403
  Receipt Date: 20140320
  Transmission Date: 20141002
  Serious: Yes (Hospitalization)
  Sender: FDA-Public Use
  Company Number: KR-AMGEN-KORCT2013022040

PATIENT
  Age: 39 Year
  Sex: Male

DRUGS (7)
  1. CINACALCET HCL - KHK [Suspect]
     Indication: HYPERPARATHYROIDISM SECONDARY
     Dosage: 25 MG, UNK
     Route: 048
     Dates: start: 20120626
  2. GASMOTIN [Concomitant]
     Dosage: 10 MG, UNK
     Route: 048
     Dates: start: 20120614
  3. ADALAT OROS [Concomitant]
     Dosage: 30 MG, UNK
     Route: 048
     Dates: start: 20101221
  4. PRITOR [Concomitant]
     Dosage: 80 MG, UNK
     Route: 048
     Dates: start: 20101221
  5. NEPHRO-VITE [Concomitant]
     Dosage: 1 DF, UNK
     Route: 048
     Dates: start: 20101021
  6. BONKY [Concomitant]
     Dosage: 0.5 MUG, UNK
     Route: 048
     Dates: start: 20111122
  7. RENAGEL                            /01459901/ [Concomitant]
     Dosage: 2400 MG, UNK
     Route: 048
     Dates: start: 20120110

REACTIONS (1)
  - Epistaxis [Unknown]
